FAERS Safety Report 8129406-4 (Version None)
Quarter: 2012Q1

REPORT INFORMATION
  Report Type: 
  Country: None (occurrence: None)
  Receive Date: 20120210
  Receipt Date: 20120207
  Transmission Date: 20120608
  Serious: Yes (Hospitalization)
  Sender: FDA-Public Use
  Company Number: AU-AMGEN-AUSCT2011041828

PATIENT
  Age: 77 Year
  Sex: Male
  Weight: 99.1 kg

DRUGS (14)
  1. MURELAX [Concomitant]
     Indication: SLEEP DISORDER
     Dosage: 7.5 MG, UNK
     Dates: start: 20100915
  2. PROCHLORPERAZINE [Concomitant]
     Indication: VERTIGO
     Dosage: 5 MG, UNK
     Dates: start: 20000615
  3. ACETAMINOPHEN [Concomitant]
     Indication: BACK PAIN
     Dates: start: 20100615
  4. SERC [Concomitant]
     Indication: MENIERE'S DISEASE
     Dosage: 30 MG, UNK
     Dates: start: 20090615, end: 20110815
  5. METOPROLOL TARTRATE [Concomitant]
     Indication: HYPERTENSION
     Dosage: 100 MG, UNK
     Dates: start: 20000615
  6. ARTHREXIN [Concomitant]
     Indication: BACK PAIN
     Dosage: 25 MG, UNK
     Dates: start: 20100715
  7. CALCIUM CARBONATE [Concomitant]
     Indication: BONE DENSITY DECREASED
     Dosage: UNK
     Dates: start: 20110601
  8. LIPITOR [Concomitant]
     Indication: HYPERLIPIDAEMIA
     Dosage: 20 MG, UNK
     Dates: start: 20010615
  9. DENOSUMAB [Suspect]
     Indication: PROSTATE CANCER
     Dosage: 60 MG, Q6MO
     Dates: start: 20110601, end: 20110601
  10. VITAMIN D [Concomitant]
     Indication: BONE DENSITY ABNORMAL
     Dosage: UNK
     Dates: start: 20110601
  11. RAMIPRIL [Concomitant]
     Indication: HYPERTENSION
     Dosage: 5 MG, UNK
     Dates: start: 20010615
  12. CEFACLOR [Concomitant]
     Indication: LOWER RESPIRATORY TRACT INFECTION
     Dates: start: 20110809, end: 20110813
  13. GOSERELIN ACETATE [Concomitant]
     Dosage: 10.8 MG, UNK
     Route: 058
     Dates: start: 20070415
  14. ASPIRIN [Concomitant]
     Indication: CORONARY ARTERY DISEASE
     Dosage: 100 MG, UNK
     Dates: start: 20010615

REACTIONS (3)
  - UVEITIS [None]
  - PAPILLOEDEMA [None]
  - OPTIC NERVE DISORDER [None]
